FAERS Safety Report 7405881-5 (Version None)
Quarter: 2011Q2

REPORT INFORMATION
  Report Type: 
  Country: None (occurrence: None)
  Receive Date: 20110411
  Receipt Date: 20110329
  Transmission Date: 20111010
  Serious: Yes (Death, Other)
  Sender: FDA-Public Use
  Company Number: JP-PAR PHARMACEUTICAL, INC-2011SCPR002823

PATIENT
  Age: 49 Year
  Sex: Male

DRUGS (4)
  1. LENALIDOMIDE [Suspect]
     Indication: MULTIPLE MYELOMA
     Dosage: 25 MG,  ON DAYS 1-21 IN A 28 DAY CYCLE
     Route: 065
  2. DEXAMETHASONE [Suspect]
     Indication: MULTIPLE MYELOMA
     Dosage: 20 MG, ON DAY 1,2,4,5,8,9,11 AND 12
     Route: 065
  3. DEXAMETHASONE [Suspect]
     Dosage: 20 MG, ON DAYS 2, 9 AND 16 ON A 28 DAY CYCLE.
     Route: 065
  4. BORTEZOMIB [Suspect]
     Indication: MULTIPLE MYELOMA
     Dosage: 1.3 MG/M2, ON DAYS 1, 4, 8 AND 11
     Route: 065

REACTIONS (6)
  - INFLAMMATION [None]
  - ACNE [None]
  - NEUROPATHY PERIPHERAL [None]
  - DRY SKIN [None]
  - HYPERTENSION [None]
  - FATIGUE [None]
